FAERS Safety Report 4647646-3 (Version None)
Quarter: 2005Q2

REPORT INFORMATION
  Report Type: 
  Country: None (occurrence: None)
  Receive Date: 20050427
  Receipt Date: 20050427
  Transmission Date: 20051028
  Serious: Yes (Hospitalization)
  Sender: FDA-Public Use
  Company Number: None

PATIENT
  Age: 79 Year
  Sex: Female
  Weight: 53.6 kg

DRUGS (20)
  1. ATENOLOL [Suspect]
     Indication: HYPERTENSION
     Dosage: 25 MG PO QD   CHRONIC
     Route: 048
  2. DIGOXIN [Suspect]
     Dosage: 0.125 MG PO QD    CHRONIC
     Route: 048
  3. ASPIRIN [Concomitant]
  4. CALCITRIOL [Concomitant]
  5. IMDUR [Concomitant]
  6. ATIVAN [Concomitant]
  7. NITROGLYCERIN [Concomitant]
  8. ERYTHROPOEITIN [Concomitant]
  9. QUININE SULFATE [Concomitant]
  10. SOD-BICARB [Concomitant]
  11. POTASSIUM CHLORIDE [Concomitant]
  12. LASIX [Concomitant]
  13. IMODIUM [Concomitant]
  14. PERCOCET [Concomitant]
  15. ZOCOR [Concomitant]
  16. LACTASE [Concomitant]
  17. OMEPRAZOLE [Concomitant]
  18. TEMAZEPAM [Concomitant]
  19. MULTIVIT [Concomitant]
  20. MECLIZINE [Concomitant]

REACTIONS (3)
  - BRADYCARDIA [None]
  - DYSPNOEA [None]
  - SICK SINUS SYNDROME [None]
